FAERS Safety Report 8322150-X (Version None)
Quarter: 2012Q2

REPORT INFORMATION
  Report Type: 
  Country: None (occurrence: None)
  Receive Date: 20120430
  Receipt Date: 20100104
  Transmission Date: 20120825
  Serious: No
  Sender: FDA-Public Use
  Company Number: US-TEVA-2010000050

PATIENT
  Sex: Female
  Weight: 92.162 kg

DRUGS (3)
  1. NUVIGIL [Suspect]
     Indication: NARCOLEPSY
     Dosage: 150 MILLIGRAM;
     Route: 048
     Dates: start: 20091101
  2. NUVIGIL [Suspect]
     Dosage: 300 MILLIGRAM;
     Route: 048
  3. PROVIGIL [Suspect]

REACTIONS (6)
  - FATIGUE [None]
  - MUSCULOSKELETAL STIFFNESS [None]
  - ABDOMINAL PAIN UPPER [None]
  - BACK PAIN [None]
  - RENAL DISORDER [None]
  - DRUG INEFFECTIVE [None]
